FAERS Safety Report 16760190 (Version 3)
Quarter: 2019Q4

REPORT INFORMATION
  Report Type: Spontaneous
  Country: US (occurrence: US)
  Receive Date: 20190830
  Receipt Date: 20191025
  Transmission Date: 20200122
  Serious: No
  Sender: FDA-Public Use
  Company Number: US-PFIZER INC-2019369914

PATIENT
  Age: 76 Year
  Sex: Female
  Weight: 53.29 kg

DRUGS (5)
  1. IBRANCE [Suspect]
     Active Substance: PALBOCICLIB
     Indication: BREAST CANCER METASTATIC
     Dosage: 125 MG, 1X/DAY
     Dates: start: 20190906, end: 20191003
  2. FULVESTRANT. [Suspect]
     Active Substance: FULVESTRANT
     Dosage: 2 DF, MONTHLY (ONCE A MONTH)
     Route: 030
  3. FULVESTRANT. [Suspect]
     Active Substance: FULVESTRANT
     Indication: BREAST CANCER METASTATIC
     Dosage: 2 DF, UNK (EVERY 2 WEEKS)
     Route: 030
     Dates: start: 20190819
  4. SENNA [SENNOSIDE A+B] [Concomitant]
     Indication: CONSTIPATION
     Dosage: 8.6 MG 2 TIMES A DAY
     Dates: start: 20190821
  5. METHADONE [Concomitant]
     Active Substance: METHADONE HYDROCHLORIDE
     Indication: PAIN
     Dosage: 5 MG, 2X/DAY
     Dates: start: 20190819

REACTIONS (2)
  - Alopecia [Unknown]
  - White blood cell count decreased [Unknown]

NARRATIVE: CASE EVENT DATE: 20191007
